FAERS Safety Report 8096169-0 (Version None)
Quarter: 2012Q1

REPORT INFORMATION
  Report Type: 
  Country: None (occurrence: None)
  Receive Date: 20120131
  Receipt Date: 20120126
  Transmission Date: 20120608
  Serious: Yes (Other)
  Sender: FDA-Public Use
  Company Number: JP-GLAXOSMITHKLINE-B0778171A

PATIENT
  Age: 4 Year
  Sex: Male

DRUGS (3)
  1. LAMICTAL [Suspect]
     Indication: EPILEPSY
     Dosage: 2MG PER DAY
     Dates: start: 20111212, end: 20111228
  2. VALPROATE SODIUM [Concomitant]
     Route: 048
  3. KEPPRA [Concomitant]
     Route: 048

REACTIONS (3)
  - RASH [None]
  - ORAL HERPES [None]
  - PNEUMONIA [None]
